FAERS Safety Report 6902771-9 (Version None)
Quarter: 2010Q3

REPORT INFORMATION
  Report Type: 
  Country: None (occurrence: None)
  Receive Date: 20100803
  Receipt Date: 20080701
  Transmission Date: 20110219
  Serious: No
  Sender: FDA-Public Use
  Company Number: US-PFIZER INC-2008056354

PATIENT
  Sex: Female
  Weight: 61.8 kg

DRUGS (8)
  1. LYRICA [Suspect]
     Indication: FIBROMYALGIA
     Dates: start: 20080624
  2. DEPAKOTE [Concomitant]
  3. CARBAMAZEPINE [Concomitant]
  4. HYDROCODONE BITARTRATE [Concomitant]
  5. ALPRAZOLAM [Concomitant]
  6. DOXEPIN HCL [Concomitant]
  7. ALBUTEROL [Concomitant]
  8. NITROGLYCERIN [Concomitant]
     Route: 060

REACTIONS (3)
  - CONSTIPATION [None]
  - DIARRHOEA [None]
  - FLATULENCE [None]
